FAERS Safety Report 16729713 (Version 3)
Quarter: 2019Q4

REPORT INFORMATION
  Report Type: Report from Study
  Country: US (occurrence: US)
  Receive Date: 20190822
  Receipt Date: 20191119
  Transmission Date: 20200122
  Serious: Yes (Other)
  Sender: FDA-Public Use
  Company Number: US-ROCHE-2384234

PATIENT
  Age: 57 Year
  Sex: Female
  Weight: 66.28 kg

DRUGS (1)
  1. OCREVUS [Suspect]
     Active Substance: OCRELIZUMAB
     Indication: RELAPSING MULTIPLE SCLEROSIS
     Dosage: ON 19/JUL/2017, 02/AUG/2017, 30/JAN/2018,30/JUL/2018, 08/AUG/2018, 05/FEB/2019, 08/FEB/2019, 19/JUL/
     Route: 065
     Dates: start: 201707

REACTIONS (2)
  - Breast mass [Not Recovered/Not Resolved]
  - Breast cancer [Not Recovered/Not Resolved]

NARRATIVE: CASE EVENT DATE: 201906
